FAERS Safety Report 7027449-5 (Version None)
Quarter: 2010Q3

REPORT INFORMATION
  Report Type: 
  Country: None (occurrence: None)
  Receive Date: 20100930
  Receipt Date: 20100922
  Transmission Date: 20110219
  Serious: Yes (Hospitalization)
  Sender: FDA-Public Use
  Company Number: CIP10002283

PATIENT
  Age: 73 Year
  Sex: Female
  Weight: 44 kg

DRUGS (14)
  1. ACTONEL WITH CALCIUM (COPACKAGED) [Suspect]
     Dosage: 1 TABLET CYCLIC DAILY, ORAL
     Route: 048
     Dates: start: 20081115
  2. MAGNESIUM (MAGNESIUM) [Concomitant]
  3. TEMAZEPAM [Concomitant]
  4. POTASSIUM (POTASSIUM) [Concomitant]
  5. NITROLINGUAL [Concomitant]
  6. PLAVIX [Concomitant]
  7. RAMIPRIL [Concomitant]
  8. CARDIZEM [Concomitant]
  9. FUROSEMIDE [Concomitant]
  10. IBILEX /00145501/ (CEFALEXIN) [Concomitant]
  11. SPIRIVA [Concomitant]
  12. ASPIRIN [Concomitant]
  13. VENTOLIN [Concomitant]
  14. SERETIDE /01420901/ (FLUTICASONE PROPIONATE, SALMETEROL XINAFOATE) [Concomitant]

REACTIONS (3)
  - ARTERIAL OCCLUSIVE DISEASE [None]
  - MYOCARDIAL INFARCTION [None]
  - PNEUMONIA [None]
